FAERS Safety Report 9778170 (Version 1)
Quarter: 2013Q4

REPORT INFORMATION
  Report Type: Spontaneous
  Country: US (occurrence: US)
  Receive Date: 20131223
  Receipt Date: 20131223
  Transmission Date: 20140711
  Serious: Yes (Other)
  Sender: FDA-Public Use
  Company Number: US-SHIRE-ALL1-2013-08695

PATIENT
  Age: 41 Year
  Sex: Female
  Weight: 71.66 kg

DRUGS (2)
  1. ADDERALL XR [Suspect]
     Indication: PRODUCT USED FOR UNKNOWN INDICATION
     Dosage: 20 MG, 1X/DAY:QD
     Route: 048
     Dates: start: 20131010
  2. ARMOUR THYROID [Suspect]
     Indication: HYPOTHYROIDISM
     Dosage: 180 MG (3 GR), 1X/DAY:QD
     Route: 048
     Dates: start: 20131010, end: 20131204

REACTIONS (11)
  - Visual acuity reduced [Not Recovered/Not Resolved]
  - Hyperthyroidism [Not Recovered/Not Resolved]
  - Migraine [Not Recovered/Not Resolved]
  - Muscle disorder [Recovering/Resolving]
  - Nerve compression [Recovering/Resolving]
  - Ear discomfort [Unknown]
  - Choking sensation [Unknown]
  - Hypoaesthesia [Unknown]
  - Headache [Unknown]
  - Nausea [Unknown]
  - Overdose [Not Recovered/Not Resolved]
